FAERS Safety Report 5522474-5 (Version None)
Quarter: 2007Q4

REPORT INFORMATION
  Report Type: 
  Country: None (occurrence: None)
  Receive Date: 20071120
  Receipt Date: 20071114
  Transmission Date: 20080405
  Serious: Yes (Other)
  Sender: FDA-Public Use
  Company Number: US-ELI_LILLY_AND_COMPANY-US200711003192

PATIENT
  Sex: Male

DRUGS (10)
  1. HUMALOG MIX 75/25 [Suspect]
  2. HUMALOG MIX 75/25 [Suspect]
  3. ACULAR [Concomitant]
  4. ZYMAR [Concomitant]
  5. ACTOS [Concomitant]
  6. GLUCOTROL [Concomitant]
  7. COZAAR [Concomitant]
  8. ZOCOR [Concomitant]
  9. FLOMAX [Concomitant]
  10. ZANTAC [Concomitant]

REACTIONS (6)
  - BLOOD GLUCOSE INCREASED [None]
  - CATARACT [None]
  - CORONARY ARTERY BYPASS [None]
  - DRY EYE [None]
  - EYE DISORDER [None]
  - EYE HAEMORRHAGE [None]
